FAERS Safety Report 15073632 (Version 7)
Quarter: 2018Q4

REPORT INFORMATION
  Report Type: Report from Study
  Country: US (occurrence: US)
  Receive Date: 20180627
  Receipt Date: 20181023
  Transmission Date: 20190204
  Serious: Yes (Hospitalization, Other)
  Sender: FDA-Public Use
  Company Number: US-GILEAD-2018-0346913

PATIENT
  Age: 75 Year
  Sex: Female
  Weight: 48.98 kg

DRUGS (30)
  1. NORVASC [Concomitant]
     Active Substance: AMLODIPINE BESYLATE
  2. FERROUS SULFATE. [Concomitant]
     Active Substance: FERROUS SULFATE
  3. FOLVITE [Concomitant]
     Active Substance: FOLIC ACID
  4. PREVACID [Concomitant]
     Active Substance: LANSOPRAZOLE
  5. PLAVIX [Concomitant]
     Active Substance: CLOPIDOGREL BISULFATE
  6. K-DUR [Concomitant]
     Active Substance: POTASSIUM CHLORIDE
  7. PRILOSEC [Concomitant]
     Active Substance: OMEPRAZOLE MAGNESIUM
  8. PREDNISONE. [Concomitant]
     Active Substance: PREDNISONE
  9. CALTRATE 600+D [Concomitant]
  10. SANDOSTATIN [Concomitant]
     Active Substance: OCTREOTIDE ACETATE
  11. ANORO ELLIPTA [Concomitant]
     Active Substance: UMECLIDINIUM BROMIDE\VILANTEROL TRIFENATATE
  12. ALBUTEROL                          /00139501/ [Concomitant]
     Active Substance: ALBUTEROL
  13. LASIX [Concomitant]
     Active Substance: FUROSEMIDE
  14. PRESERVISION AREDS [Concomitant]
     Active Substance: MINERALS\VITAMINS
  15. ASCORBIC ACID. [Concomitant]
     Active Substance: ASCORBIC ACID
  16. TADALAFIL. [Concomitant]
     Active Substance: TADALAFIL
  17. LEVOTHYROXINE. [Concomitant]
     Active Substance: LEVOTHYROXINE
  18. CELLCEPT [Concomitant]
     Active Substance: MYCOPHENOLATE MOFETIL\MYCOPHENOLATE MOFETIL HYDROCHLORIDE
  19. ARTIFICIAL TEARS                   /00222401/ [Concomitant]
     Active Substance: PROPYLENE GLYCOL
  20. LIVALO [Concomitant]
     Active Substance: PITAVASTATIN CALCIUM
  21. DELTASONE                          /00016001/ [Concomitant]
     Active Substance: DEXAMETHASONE
  22. PANTOPRAZOLE [Concomitant]
     Active Substance: PANTOPRAZOLE
  23. AMBRISENTAN [Suspect]
     Active Substance: AMBRISENTAN
     Indication: PULMONARY ARTERIAL HYPERTENSION
     Dosage: 10 MG, QD
     Route: 048
     Dates: start: 20180102, end: 20181001
  24. COREG [Concomitant]
     Active Substance: CARVEDILOL
  25. VITAMIN D                          /00107901/ [Concomitant]
     Active Substance: ERGOCALCIFEROL
  26. FLONASE                            /00908302/ [Concomitant]
     Active Substance: MOMETASONE FUROATE
  27. ZOLEDRONIC ACID [Concomitant]
     Active Substance: ZOLEDRONIC ACID
  28. INCRUSE ELLIPTA [Concomitant]
     Active Substance: UMECLIDINIUM BROMIDE
  29. KLOR-CON [Concomitant]
     Active Substance: POTASSIUM CHLORIDE
  30. ASPIRIN 81 [Concomitant]
     Active Substance: ASPIRIN

REACTIONS (8)
  - Anaemia [Recovered/Resolved]
  - Fall [Unknown]
  - Syncope [Recovered/Resolved]
  - Skin laceration [Unknown]
  - Anaemia [Unknown]
  - Loss of consciousness [Recovered/Resolved]
  - Pulmonary oedema [Recovered/Resolved]
  - Ill-defined disorder [Recovered/Resolved]

NARRATIVE: CASE EVENT DATE: 20180605
